FAERS Safety Report 23781811 (Version 1)
Quarter: 2024Q2

REPORT INFORMATION
  Report Type: Report from Study
  Country: US (occurrence: US)
  Receive Date: 20240425
  Receipt Date: 20240425
  Transmission Date: 20240716
  Serious: Yes (Death, Other)
  Sender: FDA-Public Use
  Company Number: US-TAKEDA-2023TUS096583

PATIENT
  Age: 2 Year
  Sex: Male

DRUGS (2)
  1. IDURSULFASE [Suspect]
     Active Substance: IDURSULFASE
     Indication: Illness
     Dosage: 8 MILLIGRAM, 1/WEEK
     Route: 042
     Dates: start: 202304
  2. IDURSULFASE [Suspect]
     Active Substance: IDURSULFASE
     Indication: Mucopolysaccharidosis II
     Dosage: 8 MILLIGRAM, 1/WEEK
     Route: 042
     Dates: start: 202310

REACTIONS (8)
  - Death [Fatal]
  - COVID-19 [Unknown]
  - Breath sounds abnormal [Unknown]
  - Illness [Unknown]
  - Influenza [Unknown]
  - Rash [Unknown]
  - Flushing [Unknown]
  - Urticaria [Unknown]

NARRATIVE: CASE EVENT DATE: 20240422
